FAERS Safety Report 10200271 (Version 2)
Quarter: 2014Q2

REPORT INFORMATION
  Report Type: Report from Study
  Country: JP (occurrence: JP)
  Receive Date: 20140527
  Receipt Date: 20140527
  Transmission Date: 20141212
  Serious: Yes (Hospitalization)
  Sender: FDA-Public Use
  Company Number: JP-B.I. PHARMACEUTICALS,INC./RIDGEFIELD-2014-BI-20452NB

PATIENT
  Age: 79 Year
  Sex: Male
  Weight: 74.8 kg

DRUGS (4)
  1. PRAZAXA [Suspect]
     Indication: CEREBROVASCULAR ACCIDENT PROPHYLAXIS
     Dosage: 220 MG
     Route: 048
     Dates: start: 20120424, end: 20140128
  2. ANCARON [Concomitant]
     Indication: ATRIAL FIBRILLATION
     Dosage: 100 MG
     Route: 048
  3. TAKEPRON [Concomitant]
     Indication: PROPHYLAXIS
     Dosage: 15 MG
     Route: 048
  4. LASIX [Concomitant]
     Dosage: 20 MG
     Route: 048

REACTIONS (2)
  - Pulmonary haemorrhage [Recovered/Resolved]
  - Bronchitis [Recovered/Resolved]
